FAERS Safety Report 21747285 (Version 2)
Quarter: 2023Q1

REPORT INFORMATION
  Report Type: Spontaneous
  Country: US (occurrence: US)
  Receive Date: 20221219
  Receipt Date: 20230117
  Transmission Date: 20230418
  Serious: Yes (Other)
  Sender: FDA-Public Use
  Company Number: US-BAYER-2022A168877

PATIENT
  Age: 64 Year
  Sex: Male

DRUGS (2)
  1. ALEVE [Suspect]
     Active Substance: NAPROXEN SODIUM
     Indication: Product used for unknown indication
     Dosage: UNK, TWO TABLETS IN THE MORNING AND TWO TABLETS AT NIGHT
     Route: 048
     Dates: start: 20221202, end: 20221206
  2. ALEVE [Suspect]
     Active Substance: NAPROXEN SODIUM
     Indication: Bursitis

REACTIONS (3)
  - Haematochezia [None]
  - Abnormal faeces [None]
  - Product prescribing issue [None]

NARRATIVE: CASE EVENT DATE: 20221202
